FAERS Safety Report 20071230 (Version 2)
Quarter: 2021Q4

REPORT INFORMATION
  Report Type: Report from Study
  Country: DO (occurrence: DO)
  Receive Date: 20211115
  Receipt Date: 20211124
  Transmission Date: 20220303
  Serious: Yes (Death, Life-Threatening, Hospitalization)
  Sender: FDA-Public Use
  Company Number: DO-JNJFOC-20211117789

PATIENT
  Age: 70 Year
  Sex: Male
  Weight: 82.7 kg

DRUGS (2)
  1. IMBRUVICA [Suspect]
     Active Substance: IBRUTINIB
     Indication: Marginal zone lymphoma
     Route: 048
     Dates: start: 20210410
  2. IMBRUVICA [Suspect]
     Active Substance: IBRUTINIB
     Route: 048

REACTIONS (3)
  - COVID-19 [Fatal]
  - Endotracheal intubation [Unknown]
  - Restlessness [Unknown]

NARRATIVE: CASE EVENT DATE: 20211001
